FAERS Safety Report 14465708 (Version 1)
Quarter: 2018Q1

REPORT INFORMATION
  Report Type: Spontaneous
  Country: FR (occurrence: FR)
  Receive Date: 20180131
  Receipt Date: 20180131
  Transmission Date: 20180509
  Serious: Yes (Hospitalization, Other)
  Sender: FDA-Public Use
  Company Number: FR-MERCK KGAA-2041123

PATIENT
  Age: 59 Year
  Sex: Female

DRUGS (1)
  1. NOVOTHYROX [Suspect]
     Active Substance: LEVOTHYROXINE SODIUM
     Indication: HYPOTHYROIDISM
     Dates: start: 201705

REACTIONS (8)
  - Insomnia [None]
  - Vertigo [None]
  - Fall [None]
  - Fracture [Recovering/Resolving]
  - Joint dislocation [Recovering/Resolving]
  - Fatigue [None]
  - Muscle spasms [None]
  - Disturbance in attention [None]

NARRATIVE: CASE EVENT DATE: 2017
